FAERS Safety Report 7293012-4 (Version None)
Quarter: 2011Q1

REPORT INFORMATION
  Report Type: 
  Country: None (occurrence: None)
  Receive Date: 20110215
  Receipt Date: 20110209
  Transmission Date: 20110831
  Serious: Yes (Hospitalization, Other)
  Sender: FDA-Public Use
  Company Number: US-ROCHE-712613

PATIENT
  Sex: Female
  Weight: 86.2 kg

DRUGS (4)
  1. ACCUTANE [Suspect]
     Route: 065
     Dates: start: 19971009, end: 19980306
  2. ACCUTANE [Suspect]
     Indication: ACNE
     Route: 065
     Dates: start: 19970911
  3. CLARITIN [Concomitant]
  4. ALBUTEROL [Concomitant]
     Indication: ASTHMA

REACTIONS (6)
  - CHEILITIS [None]
  - IRRITABLE BOWEL SYNDROME [None]
  - INFLAMMATORY BOWEL DISEASE [None]
  - ANAL STENOSIS [None]
  - COLITIS ULCERATIVE [None]
  - DEPRESSION [None]
